FAERS Safety Report 12576022 (Version 1)
Quarter: 2016Q3

REPORT INFORMATION
  Report Type: Report from Study
  Country: PK (occurrence: PK)
  Receive Date: 20160720
  Receipt Date: 20160720
  Transmission Date: 20161109
  Serious: Yes (Other)
  Sender: FDA-Public Use
  Company Number: PHHY2016PK097174

PATIENT
  Age: 26 Year
  Sex: Male
  Weight: 69 kg

DRUGS (1)
  1. GLIVEC [Suspect]
     Active Substance: IMATINIB MESYLATE
     Indication: GASTROINTESTINAL STROMAL TUMOUR
     Dosage: 600 MG, QD
     Route: 048
     Dates: start: 20151115, end: 20160518

REACTIONS (7)
  - Gastrointestinal stromal tumour [Unknown]
  - Hepatic lesion [Unknown]
  - Gastrointestinal wall thickening [Unknown]
  - Hepatomegaly [Unknown]
  - Malignant neoplasm progression [Unknown]
  - Pneumobilia [Unknown]
  - Gastrointestinal anastomotic complication [Unknown]

NARRATIVE: CASE EVENT DATE: 20160518
